FAERS Safety Report 4973679-3 (Version None)
Quarter: 2006Q2

REPORT INFORMATION
  Report Type: 
  Country: None (occurrence: None)
  Receive Date: 20060414
  Receipt Date: 20050930
  Transmission Date: 20061013
  Serious: Yes (Hospitalization)
  Sender: FDA-Public Use
  Company Number: US-MERCK-0510USA02165

PATIENT
  Age: 48 Year
  Sex: Female
  Weight: 96 kg

DRUGS (3)
  1. VIOXX [Suspect]
     Indication: ARTHRITIS
     Route: 048
     Dates: start: 20000701, end: 20040201
  2. VIOXX [Suspect]
     Indication: HOT FLUSH
     Route: 048
     Dates: start: 20000701, end: 20040201
  3. TYLENOL (CAPLET) [Concomitant]
     Route: 065

REACTIONS (33)
  - ANXIETY [None]
  - ARTERIOSCLEROSIS CORONARY ARTERY [None]
  - BLADDER PAIN [None]
  - BRONCHITIS ACUTE [None]
  - CARDIAC FAILURE CONGESTIVE [None]
  - CHEST PAIN [None]
  - CHOKING SENSATION [None]
  - COLITIS [None]
  - CONSTIPATION [None]
  - CORONARY ARTERY DISEASE [None]
  - DEPRESSION [None]
  - DIABETES MELLITUS NON-INSULIN-DEPENDENT [None]
  - DIZZINESS [None]
  - DUODENITIS [None]
  - DYSPEPSIA [None]
  - DYSPNOEA [None]
  - DYSPNOEA EXERTIONAL [None]
  - EROSIVE OESOPHAGITIS [None]
  - GASTRIC ULCER [None]
  - GASTRITIS EROSIVE [None]
  - GASTROINTESTINAL HAEMORRHAGE [None]
  - HAEMATURIA [None]
  - HAEMORRHOIDS [None]
  - HYPERLIPIDAEMIA [None]
  - OFF LABEL USE [None]
  - PAIN IN EXTREMITY [None]
  - PLEURAL EFFUSION [None]
  - PROCTITIS [None]
  - PULMONARY CONGESTION [None]
  - RESPIRATORY FAILURE [None]
  - SCHIZOPHRENIA [None]
  - SINUS DISORDER [None]
  - URINARY TRACT INFECTION [None]
